FAERS Safety Report 24544581 (Version 1)
Quarter: 2024Q4

REPORT INFORMATION
  Report Type: Spontaneous
  Country: US (occurrence: None)
  Receive Date: 20241023
  Receipt Date: 20241023
  Transmission Date: 20250114
  Serious: Yes (Death)
  Sender: Public
  Company Number: None

PATIENT
  Age: 81 Year
  Sex: Male

DRUGS (11)
  1. PIRFENIDONE [Suspect]
     Active Substance: PIRFENIDONE
     Indication: Idiopathic pulmonary fibrosis
     Dosage: FREQUENCY : DAILY;?
     Route: 048
     Dates: start: 20190711, end: 20230915
  2. METFORMIN [Concomitant]
  3. FLUOXETINE [Concomitant]
  4. ATORVASTATIN [Concomitant]
  5. FLOMAX [Concomitant]
  6. FOSAMAX [Concomitant]
     Active Substance: ALENDRONATE SODIUM
  7. LOSARTAN [Concomitant]
  8. PRADAXA [Concomitant]
  9. DIALYVITE [Concomitant]
  10. METOPROLOL [Concomitant]
  11. MIRALAX [Concomitant]

REACTIONS (4)
  - Loss of personal independence in daily activities [None]
  - Asthenia [None]
  - PCO2 increased [None]
  - Disease complication [None]

NARRATIVE: CASE EVENT DATE: 20230915
